FAERS Safety Report 7376584-0 (Version None)
Quarter: 2011Q1

REPORT INFORMATION
  Report Type: 
  Country: None (occurrence: None)
  Receive Date: 20110325
  Receipt Date: 20110307
  Transmission Date: 20110831
  Serious: No
  Sender: FDA-Public Use
  Company Number: B0705486A

PATIENT
  Sex: Female

DRUGS (4)
  1. RELENZA [Suspect]
     Indication: INFLUENZA
     Dosage: 30MG PER DAY
     Route: 055
     Dates: start: 20110307, end: 20110307
  2. CALONAL [Concomitant]
     Route: 065
  3. ASVERIN [Concomitant]
     Route: 065
  4. MUCODYNE [Concomitant]
     Route: 065

REACTIONS (2)
  - NO ADVERSE EVENT [None]
  - OVERDOSE [None]
